FAERS Safety Report 14790627 (Version 1)
Quarter: 2018Q2

REPORT INFORMATION
  Report Type: Spontaneous
  Country: ES (occurrence: ES)
  Receive Date: 20180423
  Receipt Date: 20180423
  Transmission Date: 20180711
  Serious: Yes (Other)
  Sender: FDA-Public Use
  Company Number: ES-IMPAX LABORATORIES, INC-2018-IPXL-01278

PATIENT
  Age: 8 Year
  Sex: Male

DRUGS (4)
  1. SODIUM CROMOGLYCATE [Suspect]
     Active Substance: CROMOLYN SODIUM
     Indication: URTICARIA PIGMENTOSA
     Dosage: 100 MG, EVERY 8HR
     Route: 048
  2. CETIRIZINE [Suspect]
     Active Substance: CETIRIZINE HYDROCHLORIDE
     Indication: URTICARIA PIGMENTOSA
     Dosage: 5 MG, DAILY
     Route: 048
  3. OMEPRAZOLE DELAYED RELEASE [Suspect]
     Active Substance: OMEPRAZOLE
     Dosage: 40 MG, DAILY
     Route: 048
  4. OMEPRAZOLE DELAYED RELEASE [Suspect]
     Active Substance: OMEPRAZOLE
     Indication: ABDOMINAL PAIN
     Dosage: 20 MG, DAILY
     Route: 048

REACTIONS (3)
  - Migraine [Unknown]
  - Intussusception [Unknown]
  - Hypertrichosis [Recovered/Resolved]
